FAERS Safety Report 20500210 (Version 1)
Quarter: 2022Q1

REPORT INFORMATION
  Report Type: Spontaneous
  Country: US (occurrence: None)
  Receive Date: 20220218
  Receipt Date: 20220218
  Transmission Date: 20220423
  Serious: Yes (Death)
  Sender: FDA-Public Use
  Company Number: None

PATIENT
  Age: 85 Year
  Sex: Male

DRUGS (16)
  1. ABIRATERONE [Suspect]
     Active Substance: ABIRATERONE
     Dosage: FREQUENCY : DAILY;?
     Route: 048
     Dates: start: 20220120
  2. TYLENOL [Concomitant]
     Active Substance: ACETAMINOPHEN
  3. Fasamax [Concomitant]
  4. AMLODIPINE [Concomitant]
     Active Substance: AMLODIPINE BESYLATE
  5. LIPITOR [Concomitant]
  6. LASIX [Concomitant]
  7. HYDROXYZINE [Concomitant]
  8. INSULIN LISPRO [Concomitant]
  9. CLONAZEPAM [Concomitant]
  10. LANTUS [Concomitant]
  11. SYNTHROID [Concomitant]
  12. METHOCARBAMOL [Concomitant]
  13. LOPRESSOR [Concomitant]
  14. PREDNISONE [Concomitant]
     Active Substance: PREDNISONE
  15. MICARDIS [Concomitant]
  16. EFFEXOR [Concomitant]

REACTIONS (1)
  - Death [None]

NARRATIVE: CASE EVENT DATE: 20220217
